FAERS Safety Report 5673736-2 (Version None)
Quarter: 2008Q1

REPORT INFORMATION
  Report Type: 
  Country: None (occurrence: None)
  Receive Date: 20080319
  Receipt Date: 20080310
  Transmission Date: 20080703
  Serious: Yes (Disabling)
  Sender: FDA-Public Use
  Company Number: US-MERCK-0711USA04397

PATIENT
  Age: 68 Year
  Sex: Female
  Weight: 82 kg

DRUGS (4)
  1. HYZAAR [Suspect]
     Indication: HYPERTENSION
     Route: 048
     Dates: start: 20060701, end: 20080101
  2. HYZAAR [Suspect]
     Route: 048
     Dates: start: 20051110, end: 20060701
  3. VYTORIN [Concomitant]
     Route: 048
  4. [THERAPY UNSPECIFIED] [Concomitant]
     Indication: HYPERSENSITIVITY
     Route: 065

REACTIONS (4)
  - ALOPECIA [None]
  - LIP SWELLING [None]
  - OEDEMA PERIPHERAL [None]
  - SKIN DISORDER [None]
